FAERS Safety Report 9701508 (Version 2)
Quarter: 2013Q4

REPORT INFORMATION
  Report Type: Spontaneous
  Country: US (occurrence: US)
  Receive Date: 20131121
  Receipt Date: 20131216
  Transmission Date: 20140711
  Serious: Yes (Other)
  Sender: FDA-Public Use
  Company Number: US-JNJFOC-20131110370

PATIENT
  Sex: Female

DRUGS (5)
  1. SIMPONI ARIA [Suspect]
     Indication: PRODUCT USED FOR UNKNOWN INDICATION
     Route: 042
     Dates: start: 2013
  2. FENTANYL [Suspect]
     Indication: PAIN
     Route: 065
     Dates: end: 201310
  3. FENTANYL [Suspect]
     Indication: PAIN
     Route: 065
     Dates: start: 201303
  4. FENTANYL [Suspect]
     Indication: PAIN
     Route: 065
  5. OXYCODONE [Concomitant]
     Route: 065

REACTIONS (2)
  - Back pain [Not Recovered/Not Resolved]
  - Tremor [Not Recovered/Not Resolved]
